FAERS Safety Report 5143518-9 (Version None)
Quarter: 2006Q4

REPORT INFORMATION
  Report Type: 
  Country: None (occurrence: None)
  Receive Date: 20061101
  Receipt Date: 20061101
  Transmission Date: 20070319
  Serious: Yes (Other)
  Sender: FDA-Public Use
  Company Number: None

PATIENT
  Age: 65 Year
  Sex: Female
  Weight: 65.7716 kg

DRUGS (2)
  1. THERAFLU THIN STRIPS N/A NOVARTIS CONSUMER HEALTH, INC. [Suspect]
     Indication: COUGH
     Dosage: 2 STRIPS EVERY 6-8 HOURS PO
     Route: 048
     Dates: start: 20061026, end: 20061026
  2. THERAFLU THIN STRIPS N/A NOVARTIS CONSUMER HEALTH, INC. [Suspect]
     Indication: NASOPHARYNGITIS
     Dosage: 2 STRIPS EVERY 6-8 HOURS PO
     Route: 048
     Dates: start: 20061026, end: 20061026

REACTIONS (4)
  - COLD SWEAT [None]
  - DIZZINESS [None]
  - EPISTAXIS [None]
  - MYDRIASIS [None]
